FAERS Safety Report 7133101-8 (Version None)
Quarter: 2010Q4

REPORT INFORMATION
  Report Type: 
  Country: None (occurrence: None)
  Receive Date: 20101202
  Receipt Date: 20101124
  Transmission Date: 20110411
  Serious: Yes (Hospitalization)
  Sender: FDA-Public Use
  Company Number: B0687131A

PATIENT
  Sex: Female

DRUGS (1)
  1. AUGMENTIN [Suspect]
     Indication: INFECTION
     Route: 048
     Dates: start: 20101001

REACTIONS (7)
  - DIARRHOEA [None]
  - DRUG HYPERSENSITIVITY [None]
  - PAPULE [None]
  - RASH MACULAR [None]
  - RASH VESICULAR [None]
  - SWELLING [None]
  - URTICARIA [None]
